FAERS Safety Report 16392378 (Version 2)
Quarter: 2019Q3

REPORT INFORMATION
  Report Type: Spontaneous
  Country: CA (occurrence: CA)
  Receive Date: 20190605
  Receipt Date: 20190924
  Transmission Date: 20191004
  Serious: Yes (Life-Threatening, Other)
  Sender: FDA-Public Use
  Company Number: CA-AUROBINDO-AUR-APL-2019-030807

PATIENT
  Age: 59 Year
  Sex: Female

DRUGS (9)
  1. AMPICILLIN INJECTION [Suspect]
     Active Substance: AMPICILLIN
     Indication: LISTERIOSIS
  2. AMPICILLIN INJECTION [Suspect]
     Active Substance: AMPICILLIN
     Indication: PERITONEAL CLOUDY EFFLUENT
     Dosage: UNK
     Route: 042
  3. VANCOMYCIN HYDROCHLORIDE. [Suspect]
     Active Substance: VANCOMYCIN HYDROCHLORIDE
     Indication: PERITONEAL CLOUDY EFFLUENT
     Dosage: UNK
     Route: 033
  4. CEFTAZIDIME SODIUM [Suspect]
     Active Substance: CEFTAZIDIME SODIUM
     Indication: PERITONEAL CLOUDY EFFLUENT
     Dosage: UNK
     Route: 033
  5. CEFTAZIDIME SODIUM [Suspect]
     Active Substance: CEFTAZIDIME SODIUM
     Indication: LISTERIOSIS
  6. GENTAMICINE [Suspect]
     Active Substance: GENTAMICIN
     Indication: LISTERIOSIS
     Dosage: UNK
     Route: 065
  7. SULFAMETHOXAZOLE AND TRIMETHOPRIM [Suspect]
     Active Substance: SULFAMETHOXAZOLE\TRIMETHOPRIM
     Indication: LISTERIOSIS
  8. VANCOMYCIN HYDROCHLORIDE. [Suspect]
     Active Substance: VANCOMYCIN HYDROCHLORIDE
     Indication: LISTERIOSIS
  9. SULFAMETHOXAZOLE AND TRIMETHOPRIM [Suspect]
     Active Substance: SULFAMETHOXAZOLE\TRIMETHOPRIM
     Indication: EVIDENCE BASED TREATMENT
     Dosage: UNK
     Route: 042

REACTIONS (2)
  - Drug ineffective [Not Recovered/Not Resolved]
  - Drug hypersensitivity [Not Recovered/Not Resolved]
